FAERS Safety Report 16784869 (Version 1)
Quarter: 2019Q4

REPORT INFORMATION
  Report Type: Spontaneous
  Country: US (occurrence: US)
  Receive Date: 20190906
  Receipt Date: 20190906
  Transmission Date: 20200122
  Serious: Yes (Hospitalization)
  Sender: FDA-Public Use
  Company Number: None

PATIENT
  Age: 67 Year
  Sex: Female
  Weight: 128.25 kg

DRUGS (12)
  1. JARDIANCE [Suspect]
     Active Substance: EMPAGLIFLOZIN
     Indication: DIABETES MELLITUS
     Dates: start: 20190815, end: 20190902
  2. WARFARIN [Concomitant]
     Active Substance: WARFARIN
  3. POTASSIUM [Concomitant]
     Active Substance: POTASSIUM
  4. NOVOKOG [Concomitant]
  5. RENVELA [Concomitant]
     Active Substance: SEVELAMER CARBONATE
  6. SPIROTALACTONE [Concomitant]
  7. TOUJEO [Concomitant]
     Active Substance: INSULIN GLARGINE
  8. TURSIMIDE [Concomitant]
  9. DOXYCYCLINE. [Concomitant]
     Active Substance: DOXYCYCLINE
  10. LEVOTHYROXIN [Concomitant]
     Active Substance: LEVOTHYROXINE
  11. METROPROLOL [Concomitant]
     Active Substance: METOPROLOL
  12. COPROCESSOR [Concomitant]

REACTIONS (3)
  - Peripheral swelling [None]
  - Confusional state [None]
  - Urinary tract infection [None]

NARRATIVE: CASE EVENT DATE: 20190902
